FAERS Safety Report 7347567-1 (Version None)
Quarter: 2011Q1

REPORT INFORMATION
  Report Type: 
  Country: None (occurrence: None)
  Receive Date: 20110311
  Receipt Date: 20110225
  Transmission Date: 20110831
  Serious: Yes (Other)
  Sender: FDA-Public Use
  Company Number: PHHY2011KR16224

PATIENT
  Age: 60 Year
  Sex: Female

DRUGS (4)
  1. MIRTAZAPINE [Suspect]
     Dosage: 15 MG, UNK
  2. BUSPIRONE [Concomitant]
     Dosage: 405 MG, UNK
  3. ALPRAZOLAM [Concomitant]
     Dosage: 20.25 MG, UNK
  4. MIRTAZAPINE [Suspect]
     Dosage: 405 MG, UNK

REACTIONS (14)
  - INTENTIONAL OVERDOSE [None]
  - TOXICITY TO VARIOUS AGENTS [None]
  - SEDATION [None]
  - NEUTROPHIL COUNT INCREASED [None]
  - SUICIDE ATTEMPT [None]
  - ATELECTASIS [None]
  - DRY MOUTH [None]
  - HYPOXIA [None]
  - BRONCHIAL HYPERREACTIVITY [None]
  - SUICIDAL IDEATION [None]
  - BODY TEMPERATURE INCREASED [None]
  - COMA SCALE ABNORMAL [None]
  - SOMNOLENCE [None]
  - ELECTROCARDIOGRAM QT PROLONGED [None]
